FAERS Safety Report 7878893-5 (Version None)
Quarter: 2011Q4

REPORT INFORMATION
  Report Type: 
  Country: None (occurrence: None)
  Receive Date: 20111025
  Receipt Date: 20100913
  Transmission Date: 20120403
  Serious: Yes (Hospitalization, Disabling, Other)
  Sender: FDA-Public Use
  Company Number: 2010BH016057

PATIENT
  Age: 5 Year
  Sex: Male
  Weight: 17.8 kg

DRUGS (1)
  1. ADVATE [Suspect]
     Indication: FACTOR VIII INHIBITION
     Dates: start: 20060718, end: 20100611

REACTIONS (1)
  - FACTOR VIII INHIBITION [None]
